FAERS Safety Report 14048703 (Version 9)
Quarter: 2018Q1

REPORT INFORMATION
  Report Type: Report from Study
  Country: FR (occurrence: FR)
  Receive Date: 20171005
  Receipt Date: 20180316
  Transmission Date: 20180508
  Serious: Yes (Death, Life-Threatening, Hospitalization, Other)
  Sender: FDA-Public Use
  Company Number: FR-JNJFOC-20171000495

PATIENT
  Age: 62 Year
  Sex: Male
  Weight: 107 kg

DRUGS (23)
  1. IBRUTINIB [Suspect]
     Active Substance: IBRUTINIB
     Indication: DIFFUSE LARGE B-CELL LYMPHOMA
     Dosage: CYCLE 1: FULL DOSE RECEIVED
     Route: 048
     Dates: start: 20170710, end: 20170723
  2. RITUXIMAB. [Concomitant]
     Active Substance: RITUXIMAB
     Indication: LYMPHOMA
     Route: 065
     Dates: start: 20170727
  3. OXALIPLATIN. [Concomitant]
     Active Substance: OXALIPLATIN
     Indication: LYMPHOMA
     Route: 065
     Dates: start: 20170727
  4. ETOPOSIDE PHOSPHATE [Concomitant]
     Active Substance: ETOPOSIDE PHOSPHATE
     Dosage: 200 MG X 100 ML NACL FOR 30MIN (6 HR)
     Route: 042
  5. MELPHALAN. [Concomitant]
     Active Substance: MELPHALAN
     Dosage: 280 MG X 250 NACL FOR 1HR (3 HR)
  6. CYTARABINE. [Concomitant]
     Active Substance: CYTARABINE
     Indication: LYMPHOMA
     Dosage: 400 MG X 250 ML G5% FOR 2 HOUR (200 MG/M2) (6 HR)
     Route: 065
  7. OXALIPLATIN. [Concomitant]
     Active Substance: OXALIPLATIN
     Indication: LYMPHOMA
     Route: 065
     Dates: start: 20170817, end: 20170820
  8. CARMUSTINE [Concomitant]
     Active Substance: CARMUSTINE
     Dosage: 599.40 MG X 500ML FOR 2 HOURS (17 HR)
     Route: 042
  9. DEXAMETHASONE. [Concomitant]
     Active Substance: DEXAMETHASONE
     Indication: LYMPHOMA
     Route: 065
     Dates: start: 20170817, end: 20170820
  10. DEXAMETHASONE. [Concomitant]
     Active Substance: DEXAMETHASONE
     Indication: LYMPHOMA
     Route: 065
     Dates: end: 20170911
  11. CYTARABINE. [Concomitant]
     Active Substance: CYTARABINE
     Indication: LYMPHOMA
     Route: 065
     Dates: end: 20170911
  12. IBRUTINIB [Suspect]
     Active Substance: IBRUTINIB
     Indication: DIFFUSE LARGE B-CELL LYMPHOMA
     Dosage: CYCLE 2: FULL DOSE RECEIVED
     Route: 048
     Dates: start: 20170731, end: 20170813
  13. IBRUTINIB [Suspect]
     Active Substance: IBRUTINIB
     Indication: DIFFUSE LARGE B-CELL LYMPHOMA
     Dosage: CYCLE 3: FULL DOSE RECEIVED
     Route: 048
     Dates: start: 20170821, end: 20170903
  14. DEXAMETHASONE. [Concomitant]
     Active Substance: DEXAMETHASONE
     Indication: LYMPHOMA
     Route: 065
     Dates: start: 20170727
  15. CYTARABINE. [Concomitant]
     Active Substance: CYTARABINE
     Indication: LYMPHOMA
     Dosage: CYCLE 1 INITIATED ON 6-JUL-2017??CYCLE 2 INITIATED ON  27-JUL-2017??CYCLE 3 INITIATED ON 17-AUG-2017
     Route: 065
     Dates: start: 20170706
  16. RITUXIMAB. [Concomitant]
     Active Substance: RITUXIMAB
     Indication: LYMPHOMA
     Dosage: CYCLE 1 INITIATED ON 6-JUL-2017??CYCLE 2 INITIATED ON  27-JUL-2017??CYCLE 3 INITIATED ON 17-AUG-2017
     Route: 065
     Dates: start: 20170706
  17. RITUXIMAB. [Concomitant]
     Active Substance: RITUXIMAB
     Indication: LYMPHOMA
     Route: 065
     Dates: start: 20170817, end: 20170820
  18. DEXAMETHASONE. [Concomitant]
     Active Substance: DEXAMETHASONE
     Indication: LYMPHOMA
     Dosage: CYCLE 1 INITIATED ON 6-JUL-2017??CYCLE 2 INITIATED ON  27-JUL-2017??CYCLE 3 INITIATED ON 17-AUG-2017
     Route: 065
     Dates: start: 20170706
  19. CYTARABINE. [Concomitant]
     Active Substance: CYTARABINE
     Indication: LYMPHOMA
     Route: 065
     Dates: start: 20170817, end: 20170820
  20. CYTARABINE. [Concomitant]
     Active Substance: CYTARABINE
     Indication: LYMPHOMA
     Route: 065
     Dates: start: 20170727
  21. RITUXIMAB. [Concomitant]
     Active Substance: RITUXIMAB
     Indication: LYMPHOMA
     Route: 065
     Dates: end: 20170911
  22. OXALIPLATIN. [Concomitant]
     Active Substance: OXALIPLATIN
     Indication: LYMPHOMA
     Dosage: CYCLE 1 INITIATED ON 6-JUL-2017??CYCLE 2 INITIATED ON  27-JUL-2017??CYCLE 3 INITIATED ON 17-AUG-2017
     Route: 065
     Dates: start: 20170706
  23. OXALIPLATIN. [Concomitant]
     Active Substance: OXALIPLATIN
     Indication: LYMPHOMA
     Route: 065
     Dates: end: 20170911

REACTIONS (3)
  - Venoocclusive liver disease [Recovered/Resolved with Sequelae]
  - Multiple organ dysfunction syndrome [Fatal]
  - Pneumonia klebsiella [Not Recovered/Not Resolved]

NARRATIVE: CASE EVENT DATE: 20170927
